FAERS Safety Report 7617057-7 (Version None)
Quarter: 2011Q3

REPORT INFORMATION
  Report Type: 
  Country: None (occurrence: None)
  Receive Date: 20110718
  Receipt Date: 20101101
  Transmission Date: 20111222
  Serious: Yes (Hospitalization, Other)
  Sender: FDA-Public Use
  Company Number: US-BAYER-201040165NA

PATIENT
  Age: 65 Year
  Sex: Male
  Weight: 93 kg

DRUGS (30)
  1. PROTAMINE SULFATE [Concomitant]
     Dosage: 50 MG
     Route: 042
     Dates: start: 19961112, end: 19961112
  2. VERSED [Concomitant]
     Dosage: 10 MG, UNK
     Route: 042
     Dates: start: 19961112, end: 19961112
  3. LIDOCAINE [Concomitant]
     Dosage: 100-75
     Route: 042
     Dates: start: 19961112, end: 19961112
  4. HEPARIN [Concomitant]
     Dosage: 21000 U, UNK
     Route: 042
     Dates: start: 19961112, end: 19961112
  5. PROTAMINE SULFATE [Concomitant]
     Dosage: 220 MG, UNK
     Route: 042
     Dates: start: 19961112, end: 19961112
  6. NORVASC [Concomitant]
     Dosage: 25 MG, UNK
     Route: 048
  7. INSULIN REGULAR [INSULIN PORCINE] [Concomitant]
     Dosage: 10 U, UNK
     Route: 042
     Dates: start: 19961112, end: 19961112
  8. ATENOLOL [Concomitant]
     Dosage: 25 MG, UNK
     Route: 048
     Dates: end: 19960828
  9. PROCARDIA XL [Concomitant]
     Dosage: 30 MG, UNK
     Route: 048
     Dates: end: 19961028
  10. PAPAVERINE [Concomitant]
     Dosage: 10 ML, UNK, IRRIGATION
     Dates: start: 19961112, end: 19961112
  11. LASIX [Concomitant]
     Dosage: 10 MG, UNK
     Route: 042
     Dates: start: 19961112, end: 19961112
  12. HEPARIN [Concomitant]
     Dosage: 5000 U , IRRIGATION
     Dates: start: 19961112, end: 19961112
  13. PHENYLEPHRINE HCL [Concomitant]
     Dosage: 10MG DRIP
     Route: 042
     Dates: start: 19961112, end: 19961112
  14. SOLU-MEDROL [Concomitant]
     Dosage: 1 G, UNK
     Route: 042
     Dates: start: 19961112, end: 19961112
  15. DIPRIVAN [Concomitant]
     Dosage: TITRATE
     Route: 042
     Dates: start: 19961112, end: 19961112
  16. TRASYLOL [Suspect]
     Indication: CORONARY ARTERY BYPASS
     Dosage: 1 ML, UNK
     Route: 042
     Dates: start: 19961112, end: 19961112
  17. EPHEDRIN [Concomitant]
     Dosage: 10 MG, UNK
     Route: 042
     Dates: start: 19961112, end: 19961112
  18. ANCEF [Concomitant]
     Dosage: 1 G
     Route: 042
     Dates: start: 19961112, end: 19961112
  19. MAXZIDE [Concomitant]
     Dosage: 25 MG, UNK
     Route: 048
  20. PAVULON [Concomitant]
     Dosage: 10 MG, UNK
     Route: 042
     Dates: start: 19961112, end: 19961112
  21. ANCEF [Concomitant]
     Dosage: 2 G, UNK
     Route: 042
     Dates: start: 19961112, end: 19961112
  22. HESPAN IN EXCEL PLASTIC CONTAINER [Concomitant]
     Dosage: 300 ML, UNK
     Route: 042
     Dates: start: 19961112, end: 19961112
  23. IBUPROFEN [Concomitant]
     Dosage: 800 MG, TID
     Route: 048
  24. LASIX [Concomitant]
     Dosage: 20 MG, UNK
     Route: 042
     Dates: start: 19961112, end: 19961112
  25. MANNITOL [Concomitant]
     Dosage: 50 ML, UNK
     Route: 042
     Dates: start: 19961112, end: 19961112
  26. KANAMYCIN [Concomitant]
     Dosage: 1 G, UNK, IRRIGATION
     Dates: start: 19961112, end: 19961112
  27. TRASYLOL [Suspect]
     Dosage: 100 CC LOADING DOSE, THEN 25CC/H
     Dates: start: 19961112, end: 19961112
  28. PROTAMINE SULFATE [Concomitant]
     Dosage: 211 MG
     Route: 042
     Dates: start: 19961112, end: 19961112
  29. ACETYLSALICYLIC ACID SRT [Concomitant]
     Dosage: UNK UNK, QD
     Route: 048
  30. ALLOPURINOL [Concomitant]
     Dosage: 100 MG, UNK
     Route: 048

REACTIONS (12)
  - MYOCARDIAL INFARCTION [None]
  - RENAL INJURY [None]
  - EMOTIONAL DISTRESS [None]
  - UNEVALUABLE EVENT [None]
  - PAIN [None]
  - INJURY [None]
  - MULTI-ORGAN FAILURE [None]
  - RENAL FAILURE [None]
  - FEAR [None]
  - RENAL IMPAIRMENT [None]
  - STRESS [None]
  - ANXIETY [None]
